FAERS Safety Report 10049851 (Version 1)
Quarter: 2014Q1

REPORT INFORMATION
  Report Type: Spontaneous
  Country: US (occurrence: None)
  Receive Date: 20140331
  Receipt Date: 20140331
  Transmission Date: 20141002
  Serious: Yes (Hospitalization)
  Sender: FDA-Public Use
  Company Number: None

PATIENT
  Age: 48 Year
  Sex: Female
  Weight: 58.2 kg

DRUGS (1)
  1. PHYTONADIONE [Suspect]
     Route: 048
     Dates: start: 20140216

REACTIONS (7)
  - Dizziness [None]
  - Abdominal pain upper [None]
  - Pyrexia [None]
  - Back pain [None]
  - Vomiting [None]
  - Dry mouth [None]
  - Asthenia [None]
